FAERS Safety Report 7477484-8 (Version None)
Quarter: 2011Q2

REPORT INFORMATION
  Report Type: 
  Country: None (occurrence: None)
  Receive Date: 20110513
  Receipt Date: 20110428
  Transmission Date: 20111010
  Serious: Yes (Other)
  Sender: FDA-Public Use
  Company Number: AR-AMGEN-ARGSP2011020843

PATIENT
  Age: 64 Year
  Sex: Female
  Weight: 75 kg

DRUGS (4)
  1. OMEPRAZOLE [Concomitant]
     Dosage: UNK
  2. ENBREL [Suspect]
     Indication: RHEUMATOID ARTHRITIS
     Dosage: 50 MG, WEEKLY
     Route: 058
     Dates: start: 20110101, end: 20110324
  3. DICLOFENAC SODIUM [Concomitant]
     Dosage: UNK
     Dates: end: 20110301
  4. METHOTREXATE [Concomitant]
     Dosage: UNK
     Dates: end: 20110301

REACTIONS (2)
  - THROMBOSIS [None]
  - GINGIVAL BLEEDING [None]
